FAERS Safety Report 6219450-6 (Version None)
Quarter: 2009Q2

REPORT INFORMATION
  Report Type: 
  Country: None (occurrence: None)
  Receive Date: 20090609
  Receipt Date: 20090528
  Transmission Date: 20091009
  Serious: Yes (Other)
  Sender: FDA-Public Use
  Company Number: PHEH2009US05408

PATIENT
  Sex: Female

DRUGS (1)
  1. RECLAST [Suspect]
     Dosage: UNK
     Dates: start: 20090520, end: 20090520

REACTIONS (5)
  - ARTHRALGIA [None]
  - DYSSTASIA [None]
  - ERYTHEMA [None]
  - INFLUENZA LIKE ILLNESS [None]
  - JOINT SWELLING [None]
